FAERS Safety Report 8732390 (Version 2)
Quarter: 2013Q1

REPORT INFORMATION
  Report Type: Spontaneous
  Country: US (occurrence: US)
  Receive Date: 20120820
  Receipt Date: 20130312
  Transmission Date: 20140127
  Serious: Yes (Death)
  Sender: FDA-Public Use
  Company Number: US-GILEAD-2012-0059729

PATIENT
  Age: 48 Year
  Sex: Male

DRUGS (3)
  1. LETAIRIS [Suspect]
     Indication: PULMONARY HYPERTENSION
     Dosage: 5 MG, UNK
     Route: 048
     Dates: start: 20111201
  2. LETAIRIS [Suspect]
     Indication: INTERSTITIAL LUNG DISEASE
  3. LETAIRIS [Suspect]
     Indication: PULMONARY EMBOLISM

REACTIONS (1)
  - Death [Fatal]
